FAERS Safety Report 23539190 (Version 1)
Quarter: 2024Q1

REPORT INFORMATION
  Report Type: Spontaneous
  Country: US (occurrence: US)
  Receive Date: 20240219
  Receipt Date: 20240219
  Transmission Date: 20240410
  Serious: No
  Sender: FDA-Public Use
  Company Number: US-BRISTOL-MYERS SQUIBB COMPANY-2024-026807

PATIENT
  Sex: Male

DRUGS (1)
  1. SOTYKTU [Suspect]
     Active Substance: DEUCRAVACITINIB
     Indication: Psoriasis
     Dosage: DOSE : 6 MG;  FREQ : 6 MG ONCE A DAY
     Route: 048
     Dates: start: 202311

REACTIONS (4)
  - Depression [Unknown]
  - Decreased appetite [Unknown]
  - Influenza like illness [Unknown]
  - Dysgeusia [Unknown]
